FAERS Safety Report 5466625-X (Version None)
Quarter: 2007Q3

REPORT INFORMATION
  Report Type: 
  Country: None (occurrence: None)
  Receive Date: 20070921
  Receipt Date: 20070921
  Transmission Date: 20080115
  Serious: No
  Sender: FDA-Public Use
  Company Number: None

PATIENT
  Age: 80 Year
  Sex: Male

DRUGS (2)
  1. DOPAMINE HYDROCHLORIDE [Suspect]
     Dosage: INJECTABLE
  2. BAXTER COLLEAGUE INFUSION PUMP [Suspect]

REACTIONS (5)
  - DEVICE MALFUNCTION [None]
  - INCORRECT DOSE ADMINISTERED [None]
  - LOSS OF CONSCIOUSNESS [None]
  - MEDICATION ERROR [None]
  - THERAPEUTIC RESPONSE DECREASED [None]
